FAERS Safety Report 14581071 (Version 1)
Quarter: 2018Q1

REPORT INFORMATION
  Report Type: Spontaneous
  Country: US (occurrence: US)
  Receive Date: 20180228
  Receipt Date: 20180228
  Transmission Date: 20180509
  Serious: No
  Sender: FDA-Public Use
  Company Number: US-PFIZER INC-2018083667

PATIENT
  Age: 7 Year
  Sex: Female

DRUGS (1)
  1. EUCRISA [Suspect]
     Active Substance: CRISABOROLE
     Indication: ECZEMA
     Dosage: 2 %, UNK (ON AFFECTED AREA)

REACTIONS (2)
  - Skin burning sensation [Recovered/Resolved]
  - Skin discolouration [Recovering/Resolving]
